FAERS Safety Report 6199473-6 (Version None)
Quarter: 2009Q2

REPORT INFORMATION
  Report Type: 
  Country: None (occurrence: None)
  Receive Date: 20090522
  Receipt Date: 20090511
  Transmission Date: 20091009
  Serious: Yes (Other)
  Sender: FDA-Public Use
  Company Number: JP-PFIZER INC-2009212317

PATIENT
  Age: 8 Year

DRUGS (6)
  1. UNASYN [Suspect]
     Indication: APPENDICITIS
     Dosage: 0.75 G, 3X/DAY
     Route: 042
     Dates: start: 20090422, end: 20090422
  2. UNASYN [Suspect]
     Indication: PERITONITIS
  3. CEFTAZIDIME [Suspect]
     Indication: APPENDICITIS
     Dosage: 0.8 G, 3X/DAY
     Route: 042
     Dates: start: 20090422, end: 20090422
  4. CEFTAZIDIME [Suspect]
     Indication: PERITONITIS
  5. VEEN-F [Concomitant]
  6. SOLITA-T3 INJECTION [Concomitant]

REACTIONS (3)
  - DYSPNOEA [None]
  - URTICARIA [None]
  - WHEEZING [None]
